FAERS Safety Report 14426329 (Version 1)
Quarter: 2018Q1

REPORT INFORMATION
  Report Type: Spontaneous
  Country: ZA (occurrence: ZA)
  Receive Date: 20180123
  Receipt Date: 20180123
  Transmission Date: 20180509
  Serious: Yes (Other)
  Sender: FDA-Public Use
  Company Number: ZA-PFIZER INC-2018025688

PATIENT
  Age: 45 Year
  Sex: Female
  Weight: 60 kg

DRUGS (1)
  1. METHOTREXATE. [Suspect]
     Active Substance: METHOTREXATE
     Indication: PSORIATIC ARTHROPATHY
     Dosage: 10 MG, WEEKLY
     Dates: start: 2013, end: 201608

REACTIONS (7)
  - Hypertensive nephropathy [Unknown]
  - Skin disorder [Unknown]
  - Headache [Unknown]
  - Condition aggravated [Unknown]
  - Haemoglobin decreased [Unknown]
  - Mouth ulceration [Unknown]
  - Renal impairment [Unknown]

NARRATIVE: CASE EVENT DATE: 2015
